FAERS Safety Report 10154517 (Version 3)
Quarter: 2014Q2

REPORT INFORMATION
  Report Type: Spontaneous
  Country: US (occurrence: US)
  Receive Date: 20140506
  Receipt Date: 20140617
  Transmission Date: 20141212
  Serious: No
  Sender: FDA-Public Use
  Company Number: US-PFIZER INC-2014122012

PATIENT
  Age: 86 Year
  Sex: Male

DRUGS (2)
  1. DEPO-TESTOSTERONE [Suspect]
     Indication: BLOOD TESTOSTERONE DECREASED
     Dosage: 75 MG, EVERY 2 WEEKS
     Route: 030
     Dates: start: 20121004, end: 20140201
  2. DEPO-TESTOSTERONE [Suspect]
     Indication: HYPOGONADISM

REACTIONS (2)
  - Drug hypersensitivity [Recovering/Resolving]
  - Rash [Recovering/Resolving]
